FAERS Safety Report 14168568 (Version 1)
Quarter: 2017Q4

REPORT INFORMATION
  Report Type: Spontaneous
  Country: FR (occurrence: FR)
  Receive Date: 20171108
  Receipt Date: 20171108
  Transmission Date: 20180321
  Serious: Yes (Disabling)
  Sender: FDA-Public Use
  Company Number: FR-MERCK KGAA-2033510

PATIENT
  Age: 62 Year
  Sex: Female

DRUGS (1)
  1. NOVOTHYROX [Suspect]
     Active Substance: LEVOTHYROXINE SODIUM
     Indication: THYROIDECTOMY
     Route: 048
     Dates: start: 2017

REACTIONS (7)
  - Fatigue [None]
  - Headache [None]
  - Peripheral coldness [None]
  - Disturbance in attention [None]
  - Arthralgia [None]
  - Amnesia [None]
  - Vertigo [None]

NARRATIVE: CASE EVENT DATE: 20170410
